FAERS Safety Report 17752382 (Version 1)
Quarter: 2020Q2

REPORT INFORMATION
  Report Type: Spontaneous
  Country: US (occurrence: US)
  Receive Date: 20200506
  Receipt Date: 20200506
  Transmission Date: 20200714
  Serious: Yes (Other)
  Sender: FDA-Public Use
  Company Number: US-AMNEAL PHARMACEUTICALS-2020-AMRX-01266

PATIENT
  Age: 61 Year
  Sex: Female

DRUGS (2)
  1. HYDROXYCHLOROQUINE SULFATE. [Suspect]
     Active Substance: HYDROXYCHLOROQUINE SULFATE
     Indication: INVASIVE LOBULAR BREAST CARCINOMA
     Dosage: 600 MILLIGRAM, BID (1200MG, 21.9 MG/KG/DAY)
     Route: 065
  2. EVEROLIMUS. [Concomitant]
     Active Substance: EVEROLIMUS
     Indication: INVASIVE LOBULAR BREAST CARCINOMA
     Dosage: 10 MILLIGRAM, QD
     Route: 065

REACTIONS (2)
  - Cornea verticillata [Recovered/Resolved]
  - Astigmatism [Not Recovered/Not Resolved]
